FAERS Safety Report 4779784-9 (Version None)
Quarter: 2005Q3

REPORT INFORMATION
  Report Type: 
  Country: None (occurrence: None)
  Receive Date: 20050914
  Receipt Date: 20041216
  Transmission Date: 20060218
  Serious: Yes (Other)
  Sender: FDA-Public Use
  Company Number: 163-20785-04030095

PATIENT
  Age: 78 Year
  Sex: Male

DRUGS (4)
  1. THALOMID [Suspect]
     Indication: MULTIPLE MYELOMA
     Dosage: 150 MG, DAILY, ORAL; 150 MG, AT BEDTIME, ORAL
     Route: 048
     Dates: start: 20031101, end: 20040801
  2. THALOMID [Suspect]
     Indication: MULTIPLE MYELOMA
     Dosage: 150 MG, DAILY, ORAL; 150 MG, AT BEDTIME, ORAL
     Route: 048
     Dates: start: 20040301
  3. ATENOLOL [Concomitant]
  4. HYDROCHLOROTHIAZIDE (HYDROCHOROTHIAZIDE) [Concomitant]

REACTIONS (6)
  - DIZZINESS [None]
  - DYSPNOEA [None]
  - ERYTHEMA [None]
  - FATIGUE [None]
  - LOSS OF CONSCIOUSNESS [None]
  - NEUROPATHY [None]
